FAERS Safety Report 7369151-6 (Version None)
Quarter: 2011Q1

REPORT INFORMATION
  Report Type: 
  Country: None (occurrence: None)
  Receive Date: 20110323
  Receipt Date: 20110318
  Transmission Date: 20110831
  Serious: No
  Sender: FDA-Public Use
  Company Number: US-PFIZER INC-2011033722

PATIENT
  Sex: Male
  Weight: 82 kg

DRUGS (2)
  1. ADVIL LIQUI-GELS [Suspect]
     Indication: NASAL CONGESTION
  2. ADVIL LIQUI-GELS [Suspect]
     Indication: NASOPHARYNGITIS
     Dosage: UNK, DAILY
     Route: 048
     Dates: start: 20110214, end: 20110215

REACTIONS (3)
  - INSOMNIA [None]
  - ANXIETY [None]
  - RESTLESSNESS [None]
